FAERS Safety Report 14827659 (Version 1)
Quarter: 2018Q2

REPORT INFORMATION
  Report Type: Spontaneous
  Country: US (occurrence: US)
  Receive Date: 20180430
  Receipt Date: 20180430
  Transmission Date: 20180711
  Serious: No
  Sender: FDA-Public Use
  Company Number: US-ABBVIE-17P-163-2022839-00

PATIENT
  Age: 34 Year
  Sex: Male

DRUGS (2)
  1. ANDROGEL [Suspect]
     Active Substance: TESTOSTERONE
     Indication: HYPOGONADISM
     Dosage: 40.5MG/2.5GMS A DAY
     Route: 061
     Dates: start: 201705
  2. ZOLOFT [Concomitant]
     Active Substance: SERTRALINE HYDROCHLORIDE
     Indication: DEPRESSION

REACTIONS (2)
  - Blood testosterone decreased [Not Recovered/Not Resolved]
  - Blood testosterone free decreased [Not Recovered/Not Resolved]

NARRATIVE: CASE EVENT DATE: 201706
